FAERS Safety Report 9775969 (Version 1)
Quarter: 2013Q4

REPORT INFORMATION
  Report Type: Spontaneous
  Country: FR (occurrence: None)
  Receive Date: 20131219
  Receipt Date: 20131219
  Transmission Date: 20140711
  Serious: Yes (Hospitalization)
  Sender: FDA-Public Use
  Company Number: EUS-2013-00813

PATIENT
  Age: 24 Year
  Sex: Female

DRUGS (10)
  1. ERWINASE (ASPARAGINASE) [Suspect]
     Indication: NON-HODGKIN^S LYMPHOMA
     Route: 042
     Dates: start: 20130717, end: 20130904
  2. METHOTREXATE (METHOTREXATE) [Concomitant]
  3. VINCRISTINE (VINCRISTINE SULFATE) [Concomitant]
  4. PURINETHOL (MERCAPTOPURINE) [Concomitant]
  5. BACTRIM [Concomitant]
  6. INNOHEP (TINZAPARIN SODIUM) [Concomitant]
  7. TRIATEC (RAMIPRIL) [Concomitant]
  8. FOLIC ACID W/VITAMINS NOS (FOLIC ACID, VITAMINS NOS) [Concomitant]
  9. VALACICLOVIR (VALACYCLOVIR) [Concomitant]
  10. HYDROCORTISONE (HYDROCORTISONE) [Concomitant]

REACTIONS (3)
  - Angioedema [None]
  - Vomiting [None]
  - Rash [None]
